FAERS Safety Report 25398932 (Version 1)
Quarter: 2025Q2

REPORT INFORMATION
  Report Type: Report from Study
  Country: CA (occurrence: CA)
  Receive Date: 20250605
  Receipt Date: 20250605
  Transmission Date: 20250717
  Serious: Yes (Other)
  Sender: ABBVIE
  Company Number: CA-ABBVIE-6191833

PATIENT
  Age: 55 Year
  Sex: Female

DRUGS (2)
  1. SKYRIZI [Suspect]
     Active Substance: RISANKIZUMAB-RZAA
     Indication: Crohn^s disease
     Route: 058
  2. SKYRIZI [Suspect]
     Active Substance: RISANKIZUMAB-RZAA
     Route: 058

REACTIONS (9)
  - Cholecystitis acute [Unknown]
  - Crohn^s disease [Unknown]
  - C-reactive protein increased [Unknown]
  - Cholelithiasis [Unknown]
  - Drug ineffective [Unknown]
  - Muscle atrophy [Unknown]
  - Fat tissue decreased [Unknown]
  - Weight increased [Unknown]
  - Hidradenitis [Unknown]

NARRATIVE: CASE EVENT DATE: 20250101
